FAERS Safety Report 6744147-3 (Version None)
Quarter: 2010Q2

REPORT INFORMATION
  Report Type: 
  Country: None (occurrence: None)
  Receive Date: 20100527
  Receipt Date: 20100526
  Transmission Date: 20101027
  Serious: Yes (Hospitalization)
  Sender: FDA-Public Use
  Company Number: D0067470A

PATIENT
  Sex: Male
  Weight: 136 kg

DRUGS (2)
  1. NARAMIG [Suspect]
     Indication: MIGRAINE
     Route: 048
  2. TRAMAL [Concomitant]
     Route: 065

REACTIONS (3)
  - COLITIS ISCHAEMIC [None]
  - LARGE INTESTINE PERFORATION [None]
  - SURGERY [None]
